FAERS Safety Report 25958659 (Version 1)
Quarter: 2025Q4

REPORT INFORMATION
  Report Type: Spontaneous
  Country: US (occurrence: US)
  Receive Date: 20251024
  Receipt Date: 20251024
  Transmission Date: 20260118
  Serious: No
  Sender: TEIKOKU
  Company Number: US-TPU-TPU-2025-00490

PATIENT
  Sex: Male

DRUGS (5)
  1. LIDOCAINE PATCH [Suspect]
     Active Substance: LIDOCAINE
     Indication: Ankle fracture
  2. LIDOCAINE PATCH [Suspect]
     Active Substance: LIDOCAINE
     Indication: Perforated ulcer
  3. LIDOCAINE PATCH [Suspect]
     Active Substance: LIDOCAINE
     Indication: Gastric operation
  4. LIDOCAINE PATCH [Suspect]
     Active Substance: LIDOCAINE
     Indication: Arthralgia
  5. LIDOCAINE PATCH [Suspect]
     Active Substance: LIDOCAINE
     Indication: Arthritis

REACTIONS (1)
  - Insurance issue [Unknown]
